FAERS Safety Report 6245041-7 (Version None)
Quarter: 2009Q2

REPORT INFORMATION
  Report Type: 
  Country: None (occurrence: None)
  Receive Date: 20090619
  Receipt Date: 20090120
  Transmission Date: 20091009
  Serious: Yes (Hospitalization)
  Sender: FDA-Public Use
  Company Number: 2009PL000067

PATIENT
  Age: 25 Year
  Sex: Female
  Weight: 52 kg

DRUGS (4)
  1. AZATHIOPRINE [Suspect]
     Indication: CROHN'S DISEASE
     Dosage: 2.5 MG/KG;QD
     Dates: start: 20061215, end: 20081228
  2. PLACEBO (PLACEBO) LYOPHILIZED POWDER (NO PREF. NAME) [Suspect]
     Indication: CROHN'S DISEASE
     Dosage: 265 MG;QD
     Dates: start: 20061228, end: 20081228
  3. MESALAZINE [Concomitant]
  4. TRIPHASIL-21 [Concomitant]

REACTIONS (1)
  - PANCREATITIS ACUTE [None]
